FAERS Safety Report 7035617-1 (Version None)
Quarter: 2010Q4

REPORT INFORMATION
  Report Type: 
  Country: None (occurrence: None)
  Receive Date: 20101008
  Receipt Date: 20100927
  Transmission Date: 20110411
  Serious: Yes (Other)
  Sender: FDA-Public Use
  Company Number: JP-PFIZER INC-2010119104

PATIENT
  Age: 78 Year
  Sex: Female

DRUGS (1)
  1. DETRUSITOL [Suspect]
     Indication: HYPERTONIC BLADDER
     Dosage: 4MG DAILY
     Route: 048
     Dates: start: 20090301

REACTIONS (1)
  - FAECES DISCOLOURED [None]
